FAERS Safety Report 5400623-7 (Version None)
Quarter: 2007Q3

REPORT INFORMATION
  Report Type: 
  Country: None (occurrence: None)
  Receive Date: 20070730
  Receipt Date: 20070614
  Transmission Date: 20080115
  Serious: Yes (Disabling)
  Sender: FDA-Public Use
  Company Number: A0651593A

PATIENT
  Age: 29 Year
  Sex: Female
  Weight: 66.8 kg

DRUGS (2)
  1. RANITIDINE HYDROCHLORIDE [Suspect]
     Indication: ABDOMINAL PAIN
     Dosage: 150MG TWICE PER DAY
     Route: 048
     Dates: start: 20070509, end: 20070513
  2. UNKNOWN [Concomitant]

REACTIONS (2)
  - ARTHRALGIA [None]
  - MYALGIA [None]
